FAERS Safety Report 8806501 (Version 2)
Quarter: 2013Q3

REPORT INFORMATION
  Report Type: Spontaneous
  Country: US (occurrence: DE)
  Receive Date: 20120925
  Receipt Date: 20130726
  Transmission Date: 20140515
  Serious: Yes (Disabling, Other)
  Sender: FDA-Public Use
  Company Number: US-BAYER-2012-098007

PATIENT
  Age: 32 Year
  Sex: Female

DRUGS (3)
  1. OCELLA [Suspect]
  2. YAZ [Suspect]
  3. YASMIN [Suspect]

REACTIONS (9)
  - Deep vein thrombosis [None]
  - Pulmonary embolism [None]
  - Injury [None]
  - Thrombosis [None]
  - Pain [None]
  - Pain [None]
  - Emotional distress [None]
  - Anxiety [None]
  - Fear [None]
